FAERS Safety Report 9110308 (Version 1)
Quarter: 2013Q1

REPORT INFORMATION
  Report Type: Spontaneous
  Country: US (occurrence: US)
  Receive Date: 20130222
  Receipt Date: 20130222
  Transmission Date: 20140127
  Serious: Yes (Other)
  Sender: FDA-Public Use
  Company Number: US-UCBSA-078657

PATIENT
  Sex: Male
  Weight: 81.6 kg

DRUGS (5)
  1. NEUPRO [Suspect]
     Indication: PARKINSON^S DISEASE
     Dosage: DOSE: 4 MG
     Route: 062
     Dates: start: 2013, end: 2013
  2. NEUPRO [Suspect]
     Indication: PARKINSON^S DISEASE
     Dosage: DOSE: 2 MG
     Route: 062
     Dates: start: 201301, end: 2013
  3. MOTRIN [Concomitant]
     Dosage: UNKNOWN DOSE
  4. CARBIDOPA/LEVODOPA [Concomitant]
     Dosage: UNKNOWN DOSE
  5. BENZATROPINE [Concomitant]
     Dosage: UNKNOWN DOSE

REACTIONS (2)
  - Nightmare [Recovered/Resolved]
  - Narcolepsy [Recovered/Resolved]
